FAERS Safety Report 14979653 (Version 12)
Quarter: 2019Q1

REPORT INFORMATION
  Report Type: Spontaneous
  Country: CA (occurrence: CA)
  Receive Date: 20180606
  Receipt Date: 20190306
  Transmission Date: 20190417
  Serious: Yes (Hospitalization, Other)
  Sender: FDA-Public Use
  Company Number: CA-CELLTRION INC.-2017CA017665

PATIENT

DRUGS (18)
  1. INFLECTRA [Suspect]
     Active Substance: INFLIXIMAB-DYYB
     Dosage: 300 MG, EVERY 0, 2, 6 WEEKS, THEN EVERY 8 WEEKS
     Route: 042
     Dates: start: 20171212, end: 20171212
  2. INFLECTRA [Suspect]
     Active Substance: INFLIXIMAB-DYYB
     Dosage: 435 MG, EVERY 4 WEEKS
     Route: 042
     Dates: start: 20180710, end: 20180710
  3. INFLECTRA [Suspect]
     Active Substance: INFLIXIMAB-DYYB
     Dosage: 435 MG, EVERY 4 WEEKS
     Route: 042
     Dates: start: 20181030, end: 20181030
  4. INFLECTRA [Suspect]
     Active Substance: INFLIXIMAB-DYYB
     Dosage: 435 MG, EVERY 4 WEEKS
     Route: 042
     Dates: start: 20180320, end: 20180320
  5. INFLECTRA [Suspect]
     Active Substance: INFLIXIMAB-DYYB
     Dosage: 435 MG, EVERY 4 WEEKS
     Route: 042
     Dates: start: 20180220, end: 20180220
  6. INFLECTRA [Suspect]
     Active Substance: INFLIXIMAB-DYYB
     Dosage: 435 MG, EVERY 4 WEEKS
     Route: 042
     Dates: start: 20181002, end: 20181002
  7. INFLECTRA [Suspect]
     Active Substance: INFLIXIMAB-DYYB
     Dosage: 500 MG, UNK
     Route: 042
     Dates: start: 20181127
  8. PREDNISONE. [Concomitant]
     Active Substance: PREDNISONE
     Dosage: (CURRENTLY TAPERING) STARTED AT 40 MG, AND CURRENTLY TAKING 25 MG
     Route: 065
  9. INFLECTRA [Suspect]
     Active Substance: INFLIXIMAB-DYYB
     Dosage: 435 MG, EVERY 4 WEEKS
     Route: 042
     Dates: start: 20180529, end: 20180529
  10. INFLECTRA [Suspect]
     Active Substance: INFLIXIMAB-DYYB
     Dosage: 400 MG, EVERY 6 WEEKS FOR 12 MONTHS
     Route: 042
     Dates: start: 20190108, end: 20190108
  11. INFLECTRA [Suspect]
     Active Substance: INFLIXIMAB-DYYB
     Dosage: 400 MG, EVERY 6 WEEKS FOR 12 MONTHS
     Route: 042
     Dates: start: 20190219
  12. METOPROLOL. [Concomitant]
     Active Substance: METOPROLOL
     Indication: ATRIAL FIBRILLATION
     Dosage: 25 MG
  13. DEXILANT [Concomitant]
     Active Substance: DEXLANSOPRAZOLE
     Dosage: 60 MG, DAILY
     Dates: start: 201711
  14. INFLECTRA [Suspect]
     Active Substance: INFLIXIMAB-DYYB
     Dosage: 435 MG, EVERY 4 WEEKS
     Route: 042
     Dates: start: 20180220, end: 20180220
  15. PREDNISONE. [Concomitant]
     Active Substance: PREDNISONE
     Indication: ATRIAL FIBRILLATION
     Dosage: 40 MG TAPERING, CURRENTLY TAKING 25MG
  16. TYLENOL [Concomitant]
     Active Substance: ACETAMINOPHEN
     Dosage: AS NEEDED
  17. INFLECTRA [Suspect]
     Active Substance: INFLIXIMAB-DYYB
     Indication: CROHN^S DISEASE
     Dosage: 300 MG, EVERY 0, 2, 6 WEEKS, THEN EVERY 8 WEEKS
     Route: 042
     Dates: start: 20171128, end: 20180109
  18. INFLECTRA [Suspect]
     Active Substance: INFLIXIMAB-DYYB
     Dosage: 435 MG, EVERY 4 WEEKS
     Route: 042
     Dates: start: 20180417, end: 20180417

REACTIONS (14)
  - Sinus disorder [Unknown]
  - Weight increased [Unknown]
  - Stoma site reaction [Unknown]
  - Infusion site reaction [Unknown]
  - Product use issue [Unknown]
  - Product use issue [Unknown]
  - Appendicitis perforated [Unknown]
  - Condition aggravated [Unknown]
  - Procedural pain [Unknown]
  - Blood pressure fluctuation [Unknown]
  - Breast enlargement [Unknown]
  - Drug ineffective [Unknown]
  - Weight decreased [Unknown]
  - Body temperature fluctuation [Unknown]

NARRATIVE: CASE EVENT DATE: 2017
